FAERS Safety Report 8482117-8 (Version None)
Quarter: 2012Q3

REPORT INFORMATION
  Report Type: 
  Country: None (occurrence: None)
  Receive Date: 20120702
  Receipt Date: 20120619
  Transmission Date: 20120928
  Serious: Yes (Hospitalization, Other)
  Sender: FDA-Public Use
  Company Number: FR-VERTEX PHARMACEUTICALS INC.-000000000000000990

PATIENT
  Sex: Male
  Weight: 116 kg

DRUGS (12)
  1. PREVISCAN (FLUINDIONE) [Concomitant]
  2. ATORVASTATIN [Concomitant]
     Indication: PROPHYLAXIS
  3. DIAMICRON [Concomitant]
     Indication: DIABETES MELLITUS
  4. KARDEGIC [Concomitant]
  5. FUROSEMIDE [Concomitant]
  6. TELAPREVIR [Suspect]
     Indication: HEPATITIS C
     Dosage: DOSAGE FORM: TABLET
     Route: 048
     Dates: start: 20110223, end: 20110518
  7. EZETIMIBE [Concomitant]
     Indication: PROPHYLAXIS
  8. BISOPROLOL FUMARATE [Concomitant]
  9. POTASSIUM CHLORIDE [Concomitant]
  10. RIBAVIRIN [Concomitant]
     Indication: HEPATITIS C
     Dates: start: 20110223, end: 20120125
  11. ALLOPURINOL [Concomitant]
  12. PEGASYS [Concomitant]
     Indication: HEPATITIS C
     Dates: start: 20110223, end: 20120125

REACTIONS (2)
  - LYMPHADENOPATHY MEDIASTINAL [None]
  - PLEURAL EFFUSION [None]
